FAERS Safety Report 8653455 (Version 2)
Quarter: 2012Q4

REPORT INFORMATION
  Report Type: 
  Country: BR (occurrence: BR)
  Receive Date: 20120706
  Receipt Date: 20121008
  Transmission Date: 20130627
  Serious: Yes (Death)
  Sender: FDA-Public Use
  Company Number: BR-ROCHE-1084197

PATIENT
  Age: 83 Year
  Sex: Male
  Weight: 65 kg

DRUGS (11)
  1. MABTHERA [Suspect]
     Indication: CHRONIC LYMPHOCYTIC LEUKAEMIA
     Route: 042
     Dates: start: 20120201, end: 20120605
  2. TYLENOL [Concomitant]
     Indication: PREMEDICATION
  3. PURAN T4 [Concomitant]
     Indication: HYPOTHYROIDISM
     Route: 065
  4. CRESTOR [Concomitant]
     Indication: DYSLIPIDAEMIA
     Route: 065
  5. ACETYLSALICYLIC ACID [Concomitant]
     Indication: DYSLIPIDAEMIA
     Route: 065
  6. ADDERA PLUS [Concomitant]
  7. CENTRUM [Concomitant]
  8. OMEPRAZOLE [Concomitant]
     Indication: GASTRITIS
     Route: 065
  9. COZAAR [Concomitant]
     Indication: HYPERTENSION
     Route: 065
  10. DECADRON [Concomitant]
  11. DIPHENHYDRAMINE [Concomitant]

REACTIONS (2)
  - Laryngeal stenosis [Fatal]
  - Death [Fatal]
